FAERS Safety Report 11400766 (Version 1)
Quarter: 2015Q3

REPORT INFORMATION
  Report Type: Spontaneous
  Country: IT (occurrence: IT)
  Receive Date: 20150820
  Receipt Date: 20150820
  Transmission Date: 20151125
  Serious: Yes (Hospitalization)
  Sender: FDA-Public Use
  Company Number: IT-TEVA-586945ACC

PATIENT
  Age: 21 Year
  Sex: Female

DRUGS (2)
  1. RISPERIDONE RATIOPHARM - 3 MG COMPRESSE RIVESTITE CON FILM [Suspect]
     Active Substance: RISPERIDONE
     Indication: BIPOLAR I DISORDER
     Dosage: 30 DF TOTAL
     Route: 048
     Dates: start: 20150223
  2. DEPAMAG - 500 MG COMPRESSE GASTRORESISTENTI [Suspect]
     Active Substance: VALPROATE MAGNESIUM
     Indication: CYCLOTHYMIC DISORDER
     Dosage: 40 DF TOTAL
     Route: 048
     Dates: start: 20150223

REACTIONS (2)
  - Overdose [Recovered/Resolved]
  - Coma [Recovered/Resolved]

NARRATIVE: CASE EVENT DATE: 20150223
